FAERS Safety Report 26186208 (Version 1)
Quarter: 2025Q4

REPORT INFORMATION
  Report Type: Spontaneous
  Country: US (occurrence: None)
  Receive Date: 20251221
  Receipt Date: 20251221
  Transmission Date: 20260117
  Serious: Yes (Disabling, Other)
  Sender: FDA-CTU
  Company Number: None

PATIENT
  Age: 43 Year
  Sex: Male
  Weight: 81 kg

DRUGS (1)
  1. ESCITALOPRAM [Suspect]
     Active Substance: ESCITALOPRAM OXALATE

REACTIONS (6)
  - Blunted affect [None]
  - Loss of libido [None]
  - Anhedonia [None]
  - Akathisia [None]
  - Sleep disorder [None]
  - Tinnitus [None]

NARRATIVE: CASE EVENT DATE: 20161212
